FAERS Safety Report 18936337 (Version 2)
Quarter: 2021Q1

REPORT INFORMATION
  Report Type: Report from Study
  Country: US (occurrence: US)
  Receive Date: 20210224
  Receipt Date: 20210305
  Transmission Date: 20210420
  Serious: Yes (Disabling)
  Sender: FDA-Public Use
  Company Number: US-PFIZER INC-2021156344

PATIENT
  Age: 16 Year
  Sex: Female
  Weight: 69.4 kg

DRUGS (5)
  1. CYCLOPHOSPHAMIDE. [Suspect]
     Active Substance: CYCLOPHOSPHAMIDE
     Dosage: UNK
     Dates: end: 20201230
  2. VINCRISTINE SULFATE. [Suspect]
     Active Substance: VINCRISTINE SULFATE
     Dosage: UNK
     Dates: end: 20210113
  3. CAMPTOSAR [Suspect]
     Active Substance: IRINOTECAN HYDROCHLORIDE
     Dosage: UNK
     Dates: end: 20201213
  4. DACTINOMYCIN [Suspect]
     Active Substance: DACTINOMYCIN
     Dosage: UNK
     Dates: end: 20201230
  5. TEMSIROLIMUS. [Suspect]
     Active Substance: TEMSIROLIMUS
     Dosage: UNK
     Dates: end: 20210106

REACTIONS (1)
  - Peripheral sensory neuropathy [Not Recovered/Not Resolved]

NARRATIVE: CASE EVENT DATE: 20210128
